FAERS Safety Report 7135520-2 (Version None)
Quarter: 2010Q4

REPORT INFORMATION
  Report Type: 
  Country: None (occurrence: None)
  Receive Date: 20101203
  Receipt Date: 20101122
  Transmission Date: 20110411
  Serious: Yes (Death, Hospitalization, Other)
  Sender: FDA-Public Use
  Company Number: DE-ELI_LILLY_AND_COMPANY-DE201010006639

PATIENT
  Age: 78 Year
  Sex: Male

DRUGS (4)
  1. FORTEO [Suspect]
     Indication: OSTEOPOROSIS
     Dosage: 20 UG, DAILY (1/D)
     Route: 058
     Dates: start: 20100427
  2. CALCIUM [Concomitant]
  3. VITAMIN D [Concomitant]
  4. PREDNISOLONE [Concomitant]
     Dosage: UNK, 7.5 - 10 MG DAILY (1/D)

REACTIONS (5)
  - BURSITIS [None]
  - CARDIAC FAILURE [None]
  - INFECTION [None]
  - RENAL FAILURE [None]
  - WOUND SECRETION [None]
